FAERS Safety Report 8790571 (Version 2)
Quarter: 2012Q4

REPORT INFORMATION
  Report Type: Spontaneous
  Country: IT (occurrence: None)
  Receive Date: 20120910
  Receipt Date: 20120914
  Transmission Date: 20130627
  Serious: Yes (Hospitalization)
  Sender: FDA-Public Use
  Company Number: 1398758

PATIENT
  Age: 60 Year
  Sex: Male

DRUGS (4)
  1. OXALIPLATIN [Suspect]
     Indication: GASTROINTESTINAL CARCINOMA
     Dosage: 100 mg, Cyclical, Intravenous
     Dates: start: 20120716, end: 20120716
  2. FLUOROURACIL [Suspect]
     Indication: GASTROINTESTINAL CARCINOMA
     Dosage: 500 mg, Cyclical, Intravenous bolus
     Dates: start: 20120716, end: 20120716
  3. FLUOROURACIL [Suspect]
     Indication: GASTROINTESTINAL CARCINOMA
     Dosage: 3000 mg, Cyclical, Parenteral
     Dates: start: 20120716, end: 20120716
  4. CALCIUM FOLINATE [Suspect]
     Indication: GASTROINTESTINAL CARCINOMA
     Dosage: 250 mg, Cyclical, Intravenous
     Dates: start: 20120716, end: 20120716

REACTIONS (4)
  - Respiratory arrest [None]
  - Hiccups [None]
  - Vomiting [None]
  - Pyrexia [None]
